FAERS Safety Report 7645551-1 (Version None)
Quarter: 2011Q3

REPORT INFORMATION
  Report Type: 
  Country: None (occurrence: None)
  Receive Date: 20110729
  Receipt Date: 20110719
  Transmission Date: 20111222
  Serious: Yes (Hospitalization, Other)
  Sender: FDA-Public Use
  Company Number: US-ROCHE-760097

PATIENT
  Sex: Female
  Weight: 69.4 kg

DRUGS (1)
  1. ACCUTANE [Suspect]
     Indication: ACNE
     Route: 048
     Dates: start: 20000501, end: 20000901

REACTIONS (8)
  - DEPRESSION [None]
  - INFLAMMATORY BOWEL DISEASE [None]
  - RECTAL HAEMORRHAGE [None]
  - IRRITABLE BOWEL SYNDROME [None]
  - RECTAL FISSURE [None]
  - CROHN'S DISEASE [None]
  - ABDOMINAL PAIN [None]
  - HAEMORRHOIDS [None]
